FAERS Safety Report 13745961 (Version 3)
Quarter: 2018Q4

REPORT INFORMATION
  Report Type: Spontaneous
  Country: CH (occurrence: CH)
  Receive Date: 20170712
  Receipt Date: 20181102
  Transmission Date: 20190204
  Serious: Yes (Hospitalization, Congenital Anomaly, Other)
  Sender: FDA-Public Use
  Company Number: CH-GLAXOSMITHKLINE-CH2017102915

PATIENT
  Age: 0 Day
  Sex: Female
  Weight: 2 kg

DRUGS (19)
  1. LAMICTAL [Suspect]
     Active Substance: LAMOTRIGINE
     Indication: EPILEPSY
     Dosage: 100 MG, BID
     Route: 064
     Dates: start: 2016
  2. NEUPOGEN [Suspect]
     Active Substance: FILGRASTIM
     Dosage: 30 MILLION IU, QD
     Route: 064
     Dates: start: 20160907, end: 20160911
  3. ZANTAC [Concomitant]
     Active Substance: RANITIDINE HYDROCHLORIDE
     Indication: DRUG HYPERSENSITIVITY
     Dosage: 50 MG, WE
     Route: 064
     Dates: start: 20161017, end: 20161227
  4. NEUPOGEN [Suspect]
     Active Substance: FILGRASTIM
     Dosage: 30 MILLION IU, QD
     Route: 064
     Dates: start: 20161001, end: 20161005
  5. SOLU-MEDROL [Concomitant]
     Active Substance: METHYLPREDNISOLONE SODIUM SUCCINATE
     Dosage: UNK
     Route: 064
     Dates: start: 20160906
  6. SOLU-MEDROL [Concomitant]
     Active Substance: METHYLPREDNISOLONE SODIUM SUCCINATE
     Dosage: UNK
     Route: 064
     Dates: start: 20161004
  7. EMEND [Concomitant]
     Active Substance: APREPITANT
     Indication: PROPHYLAXIS OF NAUSEA AND VOMITING
     Dosage: 125 MG, UNK
     Route: 064
     Dates: start: 20160822, end: 20161004
  8. TAVEGYL [Concomitant]
     Active Substance: CLEMASTINE FUMARATE
     Indication: DRUG HYPERSENSITIVITY
     Dosage: 2 MG, WE
     Route: 064
     Dates: start: 20161017, end: 20161227
  9. SOLU-MEDROL [Concomitant]
     Active Substance: METHYLPREDNISOLONE SODIUM SUCCINATE
     Indication: PROPHYLAXIS OF NAUSEA AND VOMITING
     Dosage: 125 MG, UNK
     Route: 064
     Dates: start: 20160822
  10. DOXORUBICIN [Suspect]
     Active Substance: DOXORUBICIN
     Indication: INFLAMMATORY CARCINOMA OF THE BREAST
     Dosage: 60 MG/M2, TWICE IN A WEEK
     Route: 064
     Dates: start: 20160822, end: 20161004
  11. NEUPOGEN [Suspect]
     Active Substance: FILGRASTIM
     Indication: NEUTROPENIA
     Dosage: 30 MILLION IU, QD
     Route: 064
     Dates: start: 20160825, end: 20160829
  12. PRIMPERAN [Concomitant]
     Active Substance: METOCLOPRAMIDE HYDROCHLORIDE
     Indication: PROPHYLAXIS OF NAUSEA AND VOMITING
     Dosage: UNK
     Route: 064
     Dates: start: 20160822, end: 20161227
  13. SOLU-MEDROL [Concomitant]
     Active Substance: METHYLPREDNISOLONE SODIUM SUCCINATE
     Dosage: UNK
     Route: 064
     Dates: start: 20160920
  14. TAXOL [Suspect]
     Active Substance: PACLITAXEL
     Indication: INFLAMMATORY CARCINOMA OF THE BREAST
     Dosage: 150 MG, WE
     Route: 064
     Dates: start: 20161017, end: 20161227
  15. EMEND [Concomitant]
     Active Substance: APREPITANT
     Dosage: 80 MG, UNK
     Route: 064
     Dates: start: 20160823, end: 20161006
  16. ZOFRAN [Concomitant]
     Active Substance: ONDANSETRON HYDROCHLORIDE
     Indication: PROPHYLAXIS OF NAUSEA AND VOMITING
     Dosage: 4 MG, UNK
     Route: 064
     Dates: start: 20160823, end: 20161006
  17. CYCLOPHOSPHAMIDE. [Suspect]
     Active Substance: CYCLOPHOSPHAMIDE
     Indication: INFLAMMATORY CARCINOMA OF THE BREAST
     Dosage: 1000 MG, TWICE IN A WEEK
     Route: 064
     Dates: start: 20160822, end: 20161004
  18. NEUPOGEN [Suspect]
     Active Substance: FILGRASTIM
     Dosage: 30 MILLION IU, QD
     Route: 064
     Dates: start: 20160921, end: 20160925
  19. ZOFRAN [Concomitant]
     Active Substance: ONDANSETRON HYDROCHLORIDE
     Indication: PROPHYLAXIS OF NAUSEA AND VOMITING
     Dosage: 8 MG, UNK
     Route: 064
     Dates: start: 20160822, end: 20161004

REACTIONS (4)
  - Premature baby [Recovered/Resolved]
  - Haemangioma of skin [Not Recovered/Not Resolved]
  - Hyperbilirubinaemia neonatal [Recovered/Resolved]
  - Neonatal respiratory distress syndrome [Recovered/Resolved]

NARRATIVE: CASE EVENT DATE: 20161229
